FAERS Safety Report 7643979-7 (Version None)
Quarter: 2011Q3

REPORT INFORMATION
  Report Type: 
  Country: None (occurrence: None)
  Receive Date: 20110729
  Receipt Date: 20101203
  Transmission Date: 20111222
  Serious: No
  Sender: FDA-Public Use
  Company Number: US-GLAXOSMITHKLINE-A0898772A

PATIENT
  Sex: Female

DRUGS (2)
  1. SULINDAC [Suspect]
     Indication: DESMOID TUMOUR
     Route: 065
     Dates: start: 20091001
  2. RANITIDINE [Suspect]
     Indication: DESMOID TUMOUR
     Route: 065
     Dates: start: 20091001

REACTIONS (2)
  - DIARRHOEA [None]
  - RASH [None]
